FAERS Safety Report 24135839 (Version 6)
Quarter: 2024Q4

REPORT INFORMATION
  Report Type: Spontaneous
  Country: DE (occurrence: DE)
  Receive Date: 20240725
  Receipt Date: 20241212
  Transmission Date: 20250115
  Serious: Yes (Hospitalization)
  Sender: SANDOZ
  Company Number: DE-SA-2024SA120295

PATIENT
  Age: 76 Year
  Sex: Male
  Weight: 65 kg

DRUGS (107)
  1. DEXAMETHASONE [Suspect]
     Active Substance: DEXAMETHASONE
     Dosage: 20 MG (D1)
     Route: 065
     Dates: start: 20231106, end: 20231106
  2. DEXAMETHASONE [Suspect]
     Active Substance: DEXAMETHASONE
     Dosage: 20 MG (D1)
     Route: 065
     Dates: start: 20231204, end: 20231204
  3. DEXAMETHASONE [Suspect]
     Active Substance: DEXAMETHASONE
     Dosage: 20 MG (D1)
     Route: 065
     Dates: start: 20240102, end: 20240102
  4. DEXAMETHASONE [Suspect]
     Active Substance: DEXAMETHASONE
     Dosage: 20 MG (D1)
     Route: 065
     Dates: start: 20240206, end: 20240206
  5. DEXAMETHASONE [Suspect]
     Active Substance: DEXAMETHASONE
     Dosage: 20 MG (D1)
     Route: 065
     Dates: start: 20240410, end: 20240410
  6. DEXAMETHASONE [Suspect]
     Active Substance: DEXAMETHASONE
     Dosage: 20 MG (D1)
     Route: 065
     Dates: start: 20240305, end: 20240319
  7. DEXAMETHASONE [Suspect]
     Active Substance: DEXAMETHASONE
     Dosage: 20 MG (D15)
     Route: 065
     Dates: start: 20240319, end: 20240319
  8. DEXAMETHASONE [Suspect]
     Active Substance: DEXAMETHASONE
     Dosage: 40 MG (D1 EVERY 28 DAYS)
     Route: 065
     Dates: start: 20230110, end: 20230110
  9. DEXAMETHASONE [Suspect]
     Active Substance: DEXAMETHASONE
     Indication: Plasma cell myeloma refractory
     Dosage: 40 MG (D1)
     Route: 065
     Dates: start: 20230706, end: 20230706
  10. DEXAMETHASONE [Suspect]
     Active Substance: DEXAMETHASONE
     Dosage: 40 MG (D1, D15)
     Route: 065
     Dates: start: 20230228, end: 20230314
  11. DEXAMETHASONE [Suspect]
     Active Substance: DEXAMETHASONE
     Dosage: 40 MG (D1, D15)
     Route: 065
     Dates: start: 20230328, end: 20230411
  12. DEXAMETHASONE [Suspect]
     Active Substance: DEXAMETHASONE
     Dosage: 40 MG (D1, D15)
     Route: 065
     Dates: start: 20230425, end: 20230509
  13. DEXAMETHASONE [Suspect]
     Active Substance: DEXAMETHASONE
     Dosage: 40 MG (D1, D15)
     Route: 065
     Dates: start: 20230523, end: 20230606
  14. DEXAMETHASONE [Suspect]
     Active Substance: DEXAMETHASONE
     Dosage: 40 MG (D15)
     Route: 065
     Dates: start: 20230725, end: 20230725
  15. DEXAMETHASONE [Suspect]
     Active Substance: DEXAMETHASONE
     Dosage: 40 MG (D15)
     Route: 065
     Dates: start: 20231120, end: 20231120
  16. DEXAMETHASONE [Suspect]
     Active Substance: DEXAMETHASONE
     Dosage: 40 MG (D15)
     Route: 065
     Dates: start: 20231218, end: 20231218
  17. DEXAMETHASONE [Suspect]
     Active Substance: DEXAMETHASONE
     Dosage: 40 MG (D15)
     Route: 065
     Dates: start: 20240124, end: 20240124
  18. DEXAMETHASONE [Suspect]
     Active Substance: DEXAMETHASONE
     Dosage: 40 MG (D15)
     Route: 065
     Dates: start: 20240221, end: 20240221
  19. DEXAMETHASONE [Suspect]
     Active Substance: DEXAMETHASONE
     Dosage: 40 MG (D22)
     Route: 065
     Dates: start: 20230222, end: 20230222
  20. DEXAMETHASONE [Suspect]
     Active Substance: DEXAMETHASONE
     Dosage: 40 MG (D8)
     Route: 065
     Dates: start: 20230118, end: 20230118
  21. DEXAMETHASONE [Suspect]
     Active Substance: DEXAMETHASONE
     Dosage: 40 MG (D1, D15) BIW
     Route: 065
     Dates: start: 20230807, end: 20230807
  22. DEXAMETHASONE [Suspect]
     Active Substance: DEXAMETHASONE
     Dosage: 40 MG, BIW
     Route: 065
     Dates: start: 20230808, end: 20230808
  23. DEXAMETHASONE [Suspect]
     Active Substance: DEXAMETHASONE
     Dosage: 40 MG, BIW
     Route: 065
     Dates: start: 20230828, end: 20230910
  24. DEXAMETHASONE [Suspect]
     Active Substance: DEXAMETHASONE
     Dosage: 40 MG, BIW
     Route: 065
     Dates: start: 20230912, end: 20231008
  25. DEXAMETHASONE [Suspect]
     Active Substance: DEXAMETHASONE
     Dosage: 40 MG, BIW
     Route: 065
     Dates: start: 20231009, end: 20231023
  26. ISATUXIMAB [Suspect]
     Active Substance: ISATUXIMAB
     Indication: Plasma cell myeloma refractory
     Dosage: 650 MG, BIW
     Route: 065
     Dates: start: 20230828, end: 20230911
  27. ISATUXIMAB [Suspect]
     Active Substance: ISATUXIMAB
     Dosage: 650 MG, BIW
     Route: 065
     Dates: start: 20230228, end: 20230314
  28. ISATUXIMAB [Suspect]
     Active Substance: ISATUXIMAB
     Dosage: 650 MG, BIW
     Route: 065
     Dates: start: 20230328, end: 20230411
  29. ISATUXIMAB [Suspect]
     Active Substance: ISATUXIMAB
     Dosage: 650 MG, BIW
     Route: 065
     Dates: start: 20230425, end: 20230509
  30. ISATUXIMAB [Suspect]
     Active Substance: ISATUXIMAB
     Dosage: 650 MG, BIW
     Route: 065
     Dates: start: 20230523, end: 20230606
  31. ISATUXIMAB [Suspect]
     Active Substance: ISATUXIMAB
     Dosage: 650 MG, BIW
     Route: 065
     Dates: start: 20230706, end: 20230706
  32. ISATUXIMAB [Suspect]
     Active Substance: ISATUXIMAB
     Dosage: 650 MG, BIW
     Route: 065
     Dates: start: 20230725, end: 20230725
  33. ISATUXIMAB [Suspect]
     Active Substance: ISATUXIMAB
     Dosage: 650 MG, BIW
     Route: 065
     Dates: start: 20230808, end: 20230808
  34. ISATUXIMAB [Suspect]
     Active Substance: ISATUXIMAB
     Dosage: 650 MG, BIW
     Route: 065
     Dates: start: 20230912, end: 20231008
  35. ISATUXIMAB [Suspect]
     Active Substance: ISATUXIMAB
     Dosage: 650 MG, BIW
     Route: 065
     Dates: start: 20231009, end: 20231023
  36. ISATUXIMAB [Suspect]
     Active Substance: ISATUXIMAB
     Dosage: 650 MG, BIW
     Route: 065
     Dates: start: 20231106, end: 20231120
  37. ISATUXIMAB [Suspect]
     Active Substance: ISATUXIMAB
     Dosage: 650 MG, BIW
     Route: 065
     Dates: start: 20231204, end: 20231218
  38. ISATUXIMAB [Suspect]
     Active Substance: ISATUXIMAB
     Dosage: 650 MG, BIW
     Route: 065
     Dates: start: 20240102, end: 20240124
  39. ISATUXIMAB [Suspect]
     Active Substance: ISATUXIMAB
     Dosage: 650 MG, BIW
     Route: 065
     Dates: start: 20240206, end: 20240221
  40. ISATUXIMAB [Suspect]
     Active Substance: ISATUXIMAB
     Dosage: 650 MG, BIW
     Route: 065
     Dates: start: 20240305, end: 20240319
  41. ISATUXIMAB [Suspect]
     Active Substance: ISATUXIMAB
     Dosage: 650 MG, BIW
     Route: 065
     Dates: start: 20240410, end: 20240513
  42. ISATUXIMAB [Suspect]
     Active Substance: ISATUXIMAB
     Dosage: 650 MG, QW
     Route: 065
     Dates: start: 20230110, end: 20230110
  43. ISATUXIMAB [Suspect]
     Active Substance: ISATUXIMAB
     Dosage: 650 MG, QW
     Route: 065
     Dates: start: 20230118, end: 20230118
  44. ISATUXIMAB [Suspect]
     Active Substance: ISATUXIMAB
     Dosage: 650 MG, QW
     Route: 065
     Dates: start: 20230214, end: 20230214
  45. ISATUXIMAB [Suspect]
     Active Substance: ISATUXIMAB
     Dosage: 650 MG, QW
     Route: 065
     Dates: start: 20230222, end: 20230222
  46. POMALIDOMIDE [Suspect]
     Active Substance: POMALIDOMIDE
     Dosage: 4 MG, QD
     Route: 065
     Dates: start: 20231106, end: 20231126
  47. POMALIDOMIDE [Suspect]
     Active Substance: POMALIDOMIDE
     Dosage: 4 MG, QD
     Route: 065
     Dates: start: 20231204, end: 20231224
  48. POMALIDOMIDE [Suspect]
     Active Substance: POMALIDOMIDE
     Dosage: 4 MG, QD
     Route: 065
     Dates: start: 20240102, end: 20240130
  49. POMALIDOMIDE [Suspect]
     Active Substance: POMALIDOMIDE
     Dosage: 4 MG, QD
     Route: 065
     Dates: start: 20240206, end: 20240221
  50. POMALIDOMIDE [Suspect]
     Active Substance: POMALIDOMIDE
     Dosage: 4 MG, QD
     Route: 065
     Dates: start: 20240305, end: 20240325
  51. POMALIDOMIDE [Suspect]
     Active Substance: POMALIDOMIDE
     Dosage: 4 MG, QD
     Route: 065
     Dates: start: 20240410, end: 20240416
  52. POMALIDOMIDE [Suspect]
     Active Substance: POMALIDOMIDE
     Dosage: 4 MG (D1, D2, D3, D15)
     Route: 065
     Dates: start: 20230228, end: 20230314
  53. POMALIDOMIDE [Suspect]
     Active Substance: POMALIDOMIDE
     Dosage: 4 MG (D1, D2, D3, D15)
     Route: 065
     Dates: start: 20230328, end: 20230411
  54. POMALIDOMIDE [Suspect]
     Active Substance: POMALIDOMIDE
     Dosage: 4 MG (D1-D14)
     Route: 065
     Dates: start: 20230706, end: 20230719
  55. POMALIDOMIDE [Suspect]
     Active Substance: POMALIDOMIDE
     Indication: Plasma cell myeloma refractory
     Dosage: 4 MG (D1-D21)
     Route: 065
     Dates: start: 20230828, end: 20230910
  56. POMALIDOMIDE [Suspect]
     Active Substance: POMALIDOMIDE
     Dosage: 4 MG (D1-D21)
     Route: 065
     Dates: start: 20230425, end: 20230515
  57. POMALIDOMIDE [Suspect]
     Active Substance: POMALIDOMIDE
     Dosage: 4 MG (D1-D21)
     Route: 065
     Dates: start: 20230523, end: 20230612
  58. POMALIDOMIDE [Suspect]
     Active Substance: POMALIDOMIDE
     Dosage: 4 MG (D1-D21)
     Route: 065
     Dates: start: 20230808, end: 20230821
  59. POMALIDOMIDE [Suspect]
     Active Substance: POMALIDOMIDE
     Dosage: 4 MG (D1-D21)
     Route: 065
     Dates: start: 20230912, end: 20231008
  60. POMALIDOMIDE [Suspect]
     Active Substance: POMALIDOMIDE
     Dosage: 4 MG (D1-D21)
     Route: 065
     Dates: start: 20231009, end: 20231029
  61. POMALIDOMIDE [Suspect]
     Active Substance: POMALIDOMIDE
     Dosage: 4 MG (D1-D7)
     Route: 065
     Dates: start: 20230110, end: 20230116
  62. POMALIDOMIDE [Suspect]
     Active Substance: POMALIDOMIDE
     Dosage: 4 MG (D15-D21)
     Route: 065
     Dates: start: 20230725, end: 20230731
  63. POMALIDOMIDE [Suspect]
     Active Substance: POMALIDOMIDE
     Dosage: 4 MG (D22)
     Route: 065
     Dates: start: 20230222, end: 20230222
  64. POMALIDOMIDE [Suspect]
     Active Substance: POMALIDOMIDE
     Dosage: 4 MG (D8 - D14)
     Route: 065
     Dates: start: 20230118, end: 20230124
  65. ASPIRIN [Concomitant]
     Active Substance: ASPIRIN
     Indication: Aortic valve incompetence
     Dosage: UNK
     Route: 065
     Dates: start: 20190522
  66. ASPIRIN [Concomitant]
     Active Substance: ASPIRIN
     Dosage: UNK
     Route: 065
     Dates: start: 20190522
  67. ASPIRIN [Concomitant]
     Active Substance: ASPIRIN
     Dosage: UNK
     Route: 065
     Dates: start: 20190522
  68. ASPIRIN [Concomitant]
     Active Substance: ASPIRIN
     Dosage: UNK
     Route: 065
     Dates: start: 20190522
  69. ASPIRIN [Concomitant]
     Active Substance: ASPIRIN
     Dosage: UNK
     Route: 065
     Dates: start: 20190522
  70. ASPIRIN [Concomitant]
     Active Substance: ASPIRIN
     Dosage: UNK
     Route: 065
     Dates: start: 20190522
  71. ASPIRIN [Concomitant]
     Active Substance: ASPIRIN
     Dosage: UNK
     Route: 065
     Dates: start: 20190522
  72. ASPIRIN [Concomitant]
     Active Substance: ASPIRIN
     Dosage: UNK
     Route: 065
     Dates: start: 20190522
  73. CANDESARTAN [Concomitant]
     Active Substance: CANDESARTAN
     Indication: Hypertension
     Dosage: UNK
     Route: 065
     Dates: start: 20160316
  74. CANDESARTAN [Concomitant]
     Active Substance: CANDESARTAN
     Dosage: UNK
     Route: 065
     Dates: start: 20160316
  75. CANDESARTAN [Concomitant]
     Active Substance: CANDESARTAN
     Dosage: UNK
     Route: 065
     Dates: start: 20160316
  76. CANDESARTAN [Concomitant]
     Active Substance: CANDESARTAN
     Dosage: UNK
     Route: 065
     Dates: start: 20160316
  77. CANDESARTAN [Concomitant]
     Active Substance: CANDESARTAN
     Dosage: UNK
     Route: 065
     Dates: start: 20160316
  78. CANDESARTAN [Concomitant]
     Active Substance: CANDESARTAN
     Dosage: UNK
     Route: 065
     Dates: start: 20160316
  79. CANDESARTAN [Concomitant]
     Active Substance: CANDESARTAN
     Dosage: UNK
     Route: 065
     Dates: start: 20160316
  80. CANDESARTAN [Concomitant]
     Active Substance: CANDESARTAN
     Dosage: UNK
     Route: 065
     Dates: start: 20160316
  81. CLEMASTINE [Concomitant]
     Active Substance: CLEMASTINE
     Indication: Allergy prophylaxis
     Dosage: UNK UNK, QCY
     Route: 065
     Dates: start: 20230110
  82. CLEMASTINE [Concomitant]
     Active Substance: CLEMASTINE
     Dosage: UNK UNK, QCY
     Route: 065
     Dates: start: 20230110
  83. CLEMASTINE [Concomitant]
     Active Substance: CLEMASTINE
     Dosage: UNK UNK, QCY
     Route: 065
     Dates: start: 20230110
  84. CLEMASTINE [Concomitant]
     Active Substance: CLEMASTINE
     Dosage: UNK UNK, QCY
     Route: 065
     Dates: start: 20230110
  85. CLEMASTINE [Concomitant]
     Active Substance: CLEMASTINE
     Dosage: UNK UNK, QCY
     Route: 065
     Dates: start: 20230110
  86. CLEMASTINE [Concomitant]
     Active Substance: CLEMASTINE
     Dosage: UNK UNK, QCY
     Route: 065
     Dates: start: 20230110
  87. CLEMASTINE [Concomitant]
     Active Substance: CLEMASTINE
     Dosage: UNK UNK, QCY
     Route: 065
     Dates: start: 20230110
  88. CLEMASTINE [Concomitant]
     Active Substance: CLEMASTINE
     Dosage: UNK UNK, QCY
     Route: 065
     Dates: start: 20230110
  89. PANTOPRAZOLE SODIUM [Concomitant]
     Active Substance: PANTOPRAZOLE SODIUM
     Indication: Prophylaxis
     Dosage: UNK
     Route: 065
     Dates: start: 20230123
  90. ACETAMINOPHEN [Concomitant]
     Active Substance: ACETAMINOPHEN
     Indication: Prophylaxis
     Dosage: UNK UNK, QCY
     Route: 065
     Dates: start: 20230110
  91. ACETAMINOPHEN [Concomitant]
     Active Substance: ACETAMINOPHEN
     Dosage: UNK UNK, QCY
     Route: 065
     Dates: start: 20230110
  92. ACETAMINOPHEN [Concomitant]
     Active Substance: ACETAMINOPHEN
     Dosage: UNK UNK, QCY
     Route: 065
     Dates: start: 20230110
  93. ACETAMINOPHEN [Concomitant]
     Active Substance: ACETAMINOPHEN
     Dosage: UNK UNK, QCY
     Route: 065
     Dates: start: 20230110
  94. ACETAMINOPHEN [Concomitant]
     Active Substance: ACETAMINOPHEN
     Dosage: UNK UNK, QCY
     Route: 065
     Dates: start: 20230110
  95. ACETAMINOPHEN [Concomitant]
     Active Substance: ACETAMINOPHEN
     Dosage: UNK UNK, QCY
     Route: 065
     Dates: start: 20230110
  96. ACETAMINOPHEN [Concomitant]
     Active Substance: ACETAMINOPHEN
     Dosage: UNK UNK, QCY
     Route: 065
     Dates: start: 20230110
  97. ACETAMINOPHEN [Concomitant]
     Active Substance: ACETAMINOPHEN
     Dosage: UNK UNK, QCY
     Route: 065
     Dates: start: 20230110
  98. SIMVASTATIN [Concomitant]
     Active Substance: SIMVASTATIN
     Indication: Hypercholesterolaemia
     Dosage: UNK
     Route: 065
     Dates: start: 20160316
  99. SIMVASTATIN [Concomitant]
     Active Substance: SIMVASTATIN
     Dosage: UNK
     Route: 065
     Dates: start: 20160316
  100. SIMVASTATIN [Concomitant]
     Active Substance: SIMVASTATIN
     Dosage: UNK
     Route: 065
     Dates: start: 20160316
  101. SIMVASTATIN [Concomitant]
     Active Substance: SIMVASTATIN
     Dosage: UNK
     Route: 065
     Dates: start: 20160316
  102. SIMVASTATIN [Concomitant]
     Active Substance: SIMVASTATIN
     Dosage: UNK
     Route: 065
     Dates: start: 20160316
  103. SIMVASTATIN [Concomitant]
     Active Substance: SIMVASTATIN
     Dosage: UNK
     Route: 065
     Dates: start: 20160316
  104. SIMVASTATIN [Concomitant]
     Active Substance: SIMVASTATIN
     Dosage: UNK
     Route: 065
     Dates: start: 20160316
  105. SIMVASTATIN [Concomitant]
     Active Substance: SIMVASTATIN
     Dosage: UNK
     Route: 065
     Dates: start: 20160316
  106. VITAMIN D3 [Concomitant]
     Active Substance: CHOLECALCIFEROL
     Indication: Facial paresis
     Dosage: UNK
     Route: 065
     Dates: start: 20200701
  107. VITAMIN D3 [Concomitant]
     Active Substance: CHOLECALCIFEROL
     Indication: Peripheral sensory neuropathy

REACTIONS (19)
  - General physical health deterioration [Not Recovered/Not Resolved]
  - Pleural effusion [Recovered/Resolved]
  - Pleural effusion [Not Recovered/Not Resolved]
  - Pneumonia [Recovered/Resolved]
  - Pneumonia [Recovered/Resolved]
  - Anaemia [Not Recovered/Not Resolved]
  - Neutropenia [Recovered/Resolved]
  - Cough [Not Recovered/Not Resolved]
  - Leukopenia [Recovered/Resolved]
  - Renal failure [Recovered/Resolved]
  - Neutropenia [Recovered/Resolved]
  - Cough [Recovered/Resolved]
  - Oropharyngeal pain [Recovered/Resolved]
  - Neutropenia [Recovered/Resolved]
  - Bronchitis [Recovered/Resolved]
  - Nasopharyngitis [Recovered/Resolved]
  - Respiratory tract infection [Not Recovered/Not Resolved]
  - Neutropenia [Recovered/Resolved]
  - Neutropenia [Not Recovered/Not Resolved]

NARRATIVE: CASE EVENT DATE: 20240122
